FAERS Safety Report 9458930 (Version 1)
Quarter: 2013Q3

REPORT INFORMATION
  Report Type: Report from Study
  Country: BR (occurrence: BR)
  Receive Date: 20130814
  Receipt Date: 20130814
  Transmission Date: 20140515
  Serious: Yes (Death, Hospitalization)
  Sender: FDA-Public Use
  Company Number: BR-PFIZER INC-2011314636

PATIENT
  Age: 44 Year
  Sex: Female
  Weight: 58 kg

DRUGS (6)
  1. SUTENT [Suspect]
     Indication: RENAL CANCER METASTATIC
     Dosage: 50 MG, 1X/DAY, 4 WEEKS ON/2 WEEKS OFF
     Route: 048
     Dates: start: 20111213
  2. SUTENT [Suspect]
     Indication: RENAL CELL CARCINOMA
  3. SUTENT [Suspect]
     Indication: RENAL CANCER
  4. FLUOXETINE [Concomitant]
     Dosage: 20 MG (ONE TABLET),1X/DAY
  5. RIVOTRIL [Concomitant]
     Dosage: 5 MG (ONE TABLET), 1X/DAY
  6. SPIRONOLACTONE [Concomitant]
     Dosage: 100 MG, 2X/DAY

REACTIONS (22)
  - Death [Fatal]
  - Nausea [Unknown]
  - Vomiting [Recovered/Resolved]
  - Diarrhoea [Unknown]
  - Fatigue [Unknown]
  - Swelling [Unknown]
  - Asthenia [Not Recovered/Not Resolved]
  - Abdominal distension [Unknown]
  - Mucosal inflammation [Unknown]
  - Headache [Recovered/Resolved]
  - Aphthous stomatitis [Unknown]
  - Nausea [Unknown]
  - Vomiting [Not Recovered/Not Resolved]
  - Dizziness [Unknown]
  - Feeling abnormal [Not Recovered/Not Resolved]
  - Vomiting [Recovering/Resolving]
  - Headache [Recovering/Resolving]
  - Asthenia [Recovering/Resolving]
  - Dizziness [Recovering/Resolving]
  - Hypotension [Recovering/Resolving]
  - Disease progression [Not Recovered/Not Resolved]
  - Metastatic renal cell carcinoma [Not Recovered/Not Resolved]
